FAERS Safety Report 10137130 (Version 1)
Quarter: 2014Q2

REPORT INFORMATION
  Report Type: Spontaneous
  Country: US (occurrence: US)
  Receive Date: 20140429
  Receipt Date: 20140429
  Transmission Date: 20141212
  Serious: No
  Sender: FDA-Public Use
  Company Number: US-ABBVIE-14P-163-1223922-00

PATIENT
  Age: 70 Year
  Sex: Male
  Weight: 70.37 kg

DRUGS (4)
  1. ANDROGEL [Suspect]
     Indication: BLOOD TESTOSTERONE DECREASED
     Dosage: 3 PUMPS DAILY
     Route: 061
     Dates: start: 20140123, end: 201402
  2. ANDROGEL [Suspect]
     Dates: start: 20140308, end: 20140310
  3. AXIRON [Concomitant]
     Indication: BLOOD TESTOSTERONE DECREASED
     Dates: end: 201312
  4. AXIRON [Concomitant]
     Dosage: RESTARTED IN 2014 AGAIN BUT UNSURE WHEN, AND REFILLED IN MAR 2014.
     Dates: start: 2014

REACTIONS (5)
  - Skin irritation [Recovered/Resolved]
  - Rash [Recovered/Resolved]
  - Application site pain [Recovered/Resolved]
  - Skin irritation [Recovered/Resolved]
  - Rash [Recovered/Resolved]
